FAERS Safety Report 6497470-4 (Version None)
Quarter: 2009Q4

REPORT INFORMATION
  Report Type: 
  Country: None (occurrence: None)
  Receive Date: 20091211
  Receipt Date: 20091203
  Transmission Date: 20100525
  Serious: Yes (Disabling)
  Sender: FDA-Public Use
  Company Number: ADR52892009 (MHRA ADR NO:ADR 201064

PATIENT
  Age: 75 Year
  Sex: Male

DRUGS (4)
  1. CIPROFLOXACIN [Suspect]
     Indication: BLISTER
     Dosage: 250 MG
     Dates: start: 20090411, end: 20090430
  2. CIPROFLOXACIN [Suspect]
     Indication: FURUNCLE
     Dosage: 250 MG
     Dates: start: 20090411, end: 20090430
  3. ASPIRIN [Concomitant]
  4. QUININE [Concomitant]

REACTIONS (6)
  - ARTHRALGIA [None]
  - MUSCULOSKELETAL STIFFNESS [None]
  - MYALGIA [None]
  - PAIN IN EXTREMITY [None]
  - SPINAL DISORDER [None]
  - TENDONITIS [None]
